FAERS Safety Report 13959884 (Version 2)
Quarter: 2018Q3

REPORT INFORMATION
  Report Type: Spontaneous
  Country: US (occurrence: US)
  Receive Date: 20170911
  Receipt Date: 20180706
  Transmission Date: 20181010
  Serious: Yes (Hospitalization)
  Sender: FDA-Public Use
  Company Number: US-DSJP-DSU-2017-136616

PATIENT

DRUGS (1)
  1. OLMESARTAN MEDOXOMIL. [Suspect]
     Active Substance: OLMESARTAN MEDOXOMIL
     Indication: PRODUCT USED FOR UNKNOWN INDICATION
     Dosage: UNK
     Dates: start: 20080109, end: 20080908

REACTIONS (3)
  - Sprue-like enteropathy [Recovered/Resolved]
  - Coeliac disease [Not Recovered/Not Resolved]
  - Diarrhoea infectious [Recovered/Resolved]

NARRATIVE: CASE EVENT DATE: 20080708
